FAERS Safety Report 5503054-4 (Version None)
Quarter: 2007Q4

REPORT INFORMATION
  Report Type: 
  Country: None (occurrence: None)
  Receive Date: 20071031
  Receipt Date: 20071016
  Transmission Date: 20080405
  Serious: Yes (Other)
  Sender: FDA-Public Use
  Company Number: US-ROCHE-528325

PATIENT

DRUGS (1)
  1. INTERFERON ALFA [Suspect]
     Route: 058

REACTIONS (1)
  - ANTI-THYROID ANTIBODY [None]
